FAERS Safety Report 6095352-3 (Version None)
Quarter: 2009Q1

REPORT INFORMATION
  Report Type: 
  Country: None (occurrence: None)
  Receive Date: 20090227
  Receipt Date: 20080312
  Transmission Date: 20090719
  Serious: No
  Sender: FDA-Public Use
  Company Number: A0714996A

PATIENT
  Age: 39 Year
  Sex: Female

DRUGS (6)
  1. LAMICTAL [Suspect]
     Dosage: 50MG PER DAY
     Route: 048
     Dates: start: 20080218
  2. SYNTHROID [Concomitant]
  3. CYTOMEL [Concomitant]
  4. SPIRONOLACTONE [Concomitant]
  5. YASMIN [Concomitant]
  6. PHENTERMINE [Concomitant]

REACTIONS (1)
  - NASAL ULCER [None]
